FAERS Safety Report 15758523 (Version 2)
Quarter: 2019Q2

REPORT INFORMATION
  Report Type: Report from Study
  Country: GB (occurrence: GB)
  Receive Date: 20181225
  Receipt Date: 20190408
  Transmission Date: 20190711
  Serious: Yes (Other)
  Sender: FDA-Public Use
  Company Number: PHHY2018GB171664

PATIENT
  Age: 62 Year
  Sex: Female

DRUGS (1)
  1. ERELZI [Suspect]
     Active Substance: ETANERCEPT-SZZS
     Indication: RHEUMATOID ARTHRITIS
     Dosage: 50 MG, QW
     Route: 058
     Dates: start: 20181101

REACTIONS (5)
  - Pain in extremity [Unknown]
  - Thermal burn [Not Recovered/Not Resolved]
  - Infection [Unknown]
  - Burns second degree [Unknown]
  - Injection site pain [Unknown]

NARRATIVE: CASE EVENT DATE: 20181203
